FAERS Safety Report 7623133-5 (Version None)
Quarter: 2011Q3

REPORT INFORMATION
  Report Type: 
  Country: None (occurrence: None)
  Receive Date: 20110720
  Receipt Date: 20110705
  Transmission Date: 20111222
  Serious: Yes (Other)
  Sender: FDA-Public Use
  Company Number: PHHY2011US59929

PATIENT
  Sex: Female

DRUGS (11)
  1. VYTORIN [Concomitant]
     Dosage: UNK
  2. NEXIUM [Concomitant]
     Dosage: UNK
  3. RECLAST [Suspect]
     Route: 042
  4. ACTONEL [Suspect]
  5. SODIUM CHLORIDE [Concomitant]
     Dosage: UNK
  6. METOPROLOL TARTRATE [Concomitant]
     Dosage: UNK
  7. ASPIRIN [Concomitant]
     Dosage: 81 MG, UNK
  8. FOSAMAX [Suspect]
     Dosage: 70 MG, QW
  9. CITRACAL [Concomitant]
     Dosage: UNK
  10. UNISOM [Concomitant]
     Dosage: 2 DF, QHS
  11. CENTRUM [Concomitant]
     Dosage: UNK

REACTIONS (7)
  - OSTEOPOROSIS [None]
  - ARTHRALGIA [None]
  - FOOT DEFORMITY [None]
  - PAIN [None]
  - INSOMNIA [None]
  - LIMB INJURY [None]
  - LIP DISORDER [None]
